FAERS Safety Report 24004983 (Version 1)
Quarter: 2024Q2

REPORT INFORMATION
  Report Type: Spontaneous
  Country: US (occurrence: None)
  Receive Date: 20240621
  Receipt Date: 20240621
  Transmission Date: 20240715
  Serious: Yes (Hospitalization)
  Sender: FDA-Public Use
  Company Number: None

PATIENT
  Age: 70 Year
  Sex: Male
  Weight: 74 kg

DRUGS (1)
  1. RIVAROXABAN [Suspect]
     Active Substance: RIVAROXABAN
     Dates: start: 20240130, end: 20240229

REACTIONS (3)
  - Gastrointestinal haemorrhage [None]
  - Gastritis erosive [None]
  - Gastric ulcer [None]

NARRATIVE: CASE EVENT DATE: 20240226
